FAERS Safety Report 17941788 (Version 1)
Quarter: 2020Q2

REPORT INFORMATION
  Report Type: Spontaneous
  Country: US (occurrence: US)
  Receive Date: 20200625
  Receipt Date: 20200625
  Transmission Date: 20200714
  Serious: No
  Sender: FDA-Public Use
  Company Number: US-SA-2020SA158475

PATIENT

DRUGS (13)
  1. VITAMIN B12 [Concomitant]
     Active Substance: CYANOCOBALAMIN
  2. SYMBICORT [Concomitant]
     Active Substance: BUDESONIDE\FORMOTEROL FUMARATE DIHYDRATE
  3. VENTOLIN [Concomitant]
     Active Substance: ALBUTEROL SULFATE
     Dosage: UNK
  4. DUPIXENT [Suspect]
     Active Substance: DUPILUMAB
     Indication: ASTHMA
     Dosage: 200 MG, QOW
     Route: 058
     Dates: start: 20200519
  5. MULTIVITAMINS [VITAMINS NOS] [Concomitant]
     Active Substance: VITAMINS
  6. BENADRYL [Concomitant]
     Active Substance: DIPHENHYDRAMINE HYDROCHLORIDE
  7. ADVIL [IBUPROFEN] [Concomitant]
     Active Substance: IBUPROFEN
  8. IPRATROPIUM/ALBUTEROL [Concomitant]
     Active Substance: ALBUTEROL\IPRATROPIUM
  9. LEVAQUIN [Concomitant]
     Active Substance: LEVOFLOXACIN
  10. VITAMIN C [Concomitant]
     Active Substance: ASCORBIC ACID
  11. TOBRAMYCIN. [Suspect]
     Active Substance: TOBRAMYCIN
     Dosage: UNK
     Dates: start: 2020
  12. ASTRAGALUS MEMBRANACEUS [Concomitant]
     Active Substance: ASTRAGALUS PROPINQUUS ROOT\HERBALS
  13. ELDERBERRY [SAMBUCUS NIGRA] [Concomitant]

REACTIONS (1)
  - Aphonia [Unknown]

NARRATIVE: CASE EVENT DATE: 2020
